FAERS Safety Report 23062375 (Version 1)
Quarter: 2023Q4

REPORT INFORMATION
  Report Type: Spontaneous
  Country: US (occurrence: US)
  Receive Date: 20231013
  Receipt Date: 20231013
  Transmission Date: 20240110
  Serious: No
  Sender: FDA-Public Use
  Company Number: US-drreddys-SPO/USA/23/0176658

PATIENT
  Age: 15 Year

DRUGS (1)
  1. ZENATANE [Suspect]
     Active Substance: ISOTRETINOIN
     Indication: Product used for unknown indication
     Dosage: RMA ISSUED DATE: 20 JULY 2023 02:49:48 PM,19 JUNE 2023 01:34:56 PM, 25 MAY 2023 02:25:00 PM

REACTIONS (1)
  - Weight abnormal [Unknown]
